FAERS Safety Report 7210624-4 (Version None)
Quarter: 2010Q4

REPORT INFORMATION
  Report Type: 
  Country: None (occurrence: None)
  Receive Date: 20101223
  Receipt Date: 20101209
  Transmission Date: 20110411
  Serious: Yes (Hospitalization)
  Sender: FDA-Public Use
  Company Number: 2010002271

PATIENT
  Age: 62 Year
  Sex: Female

DRUGS (4)
  1. ERLOTINIB HYDROCHLORIDE [Suspect]
     Indication: NON-SMALL CELL LUNG CANCER
     Dosage: ORAL
     Route: 048
     Dates: start: 20080316
  2. PERTUZUMAB [Suspect]
     Indication: NON-SMALL CELL LUNG CANCER
     Dosage: (Q3W),INTRAVENOUS
     Route: 042
     Dates: start: 20100316
  3. KLOR-CON [Concomitant]
  4. MAGNESIUM OXIDE (MAGNESIUM OXIDE) [Concomitant]

REACTIONS (2)
  - DIARRHOEA [None]
  - PNEUMATOSIS INTESTINALIS [None]
